FAERS Safety Report 4760011-3 (Version None)
Quarter: 2005Q3

REPORT INFORMATION
  Report Type: 
  Country: None (occurrence: None)
  Receive Date: 20050831
  Receipt Date: 20050831
  Transmission Date: 20060218
  Serious: Yes (Hospitalization)
  Sender: FDA-Public Use
  Company Number: None

PATIENT
  Age: 52 Year
  Sex: Male
  Weight: 67 kg

DRUGS (15)
  1. AVASTIN [Suspect]
     Indication: CHEMOTHERAPY
     Dosage: 5 MG/KG IV Q 14 DAYS
     Route: 042
     Dates: start: 20050627, end: 20050817
  2. AVASTIN [Suspect]
  3. FOLFIRI (IRINOTECAN) [Suspect]
     Dosage: IV Q 14 DAYS
     Route: 042
     Dates: start: 20050627, end: 20050817
  4. FLUOROURACIL [Suspect]
  5. LEUCOVORIN [Suspect]
  6. OXYCONTIN [Concomitant]
  7. SONATA [Concomitant]
  8. IMODIUM [Concomitant]
  9. COMPAZINE [Concomitant]
  10. XENADERM OINTMENT [Concomitant]
  11. IRINOTECAN [Concomitant]
  12. 5FU [Concomitant]
  13. LEUCOVORIN [Concomitant]
  14. DULCOLAX [Concomitant]
  15. LEXAPRO [Concomitant]

REACTIONS (2)
  - FALL [None]
  - FEMUR FRACTURE [None]
